FAERS Safety Report 25684275 (Version 1)
Quarter: 2025Q3

REPORT INFORMATION
  Report Type: Report from Study
  Country: US (occurrence: US)
  Receive Date: 20250815
  Receipt Date: 20250815
  Transmission Date: 20251020
  Serious: Yes (Hospitalization, Other)
  Sender: ALEXION PHARMACEUTICALS
  Company Number: US-AstraZeneca-CH-00928472A

PATIENT
  Sex: Male

DRUGS (1)
  1. SOLIRIS [Suspect]
     Active Substance: ECULIZUMAB
     Indication: Myasthenia gravis

REACTIONS (12)
  - Diabetes mellitus [Unknown]
  - Headache [Unknown]
  - General physical health deterioration [Recovering/Resolving]
  - Infusion related reaction [Recovering/Resolving]
  - Blood cholesterol increased [Unknown]
  - Incorrect product administration duration [Recovering/Resolving]
  - Weight decreased [Unknown]
  - Bone pain [Unknown]
  - Blood pressure increased [Unknown]
  - Diplopia [Unknown]
  - Eyelid ptosis [Unknown]
  - Impaired driving ability [Unknown]
